FAERS Safety Report 24268396 (Version 2)
Quarter: 2024Q3

REPORT INFORMATION
  Report Type: Spontaneous
  Country: US (occurrence: US)
  Receive Date: 20240830
  Receipt Date: 20240917
  Transmission Date: 20241016
  Serious: No
  Sender: KARYOPHARM THERAPEUTICS
  Company Number: US-KARYOPHARM-2024KPT001466

PATIENT

DRUGS (12)
  1. XPOVIO [Suspect]
     Active Substance: SELINEXOR
     Indication: Plasma cell myeloma
     Dosage: 40 MG, 2X/WEEK
     Route: 048
     Dates: start: 20240819
  2. ASPIRIN [Concomitant]
     Active Substance: ASPIRIN
  3. ATORVASTATIN [Concomitant]
     Active Substance: ATORVASTATIN
  4. CARVEDILOL [Concomitant]
     Active Substance: CARVEDILOL
  5. CITALOPRAM [Concomitant]
     Active Substance: CITALOPRAM\CITALOPRAM HYDROBROMIDE
  6. CEFIXIME [Concomitant]
     Active Substance: CEFIXIME
  7. DEXAMETHASONE [Concomitant]
     Active Substance: DEXAMETHASONE
  8. GABAPENTIN [Concomitant]
     Active Substance: GABAPENTIN
  9. KEFLEX [Concomitant]
     Active Substance: CEPHALEXIN
  10. VALTREX [Concomitant]
     Active Substance: VALACYCLOVIR HYDROCHLORIDE
  11. WARFARIN [Concomitant]
     Active Substance: WARFARIN
  12. ZOFRAN [Concomitant]
     Active Substance: ONDANSETRON HYDROCHLORIDE

REACTIONS (6)
  - Malaise [Recovered/Resolved]
  - Insomnia [Unknown]
  - Peripheral swelling [Unknown]
  - Asthenia [Recovered/Resolved]
  - Fatigue [Unknown]
  - Dyspnoea [Unknown]

NARRATIVE: CASE EVENT DATE: 20240801
